FAERS Safety Report 25406476 (Version 1)
Quarter: 2025Q2

REPORT INFORMATION
  Report Type: Spontaneous
  Country: JP (occurrence: JP)
  Receive Date: 20250606
  Receipt Date: 20250606
  Transmission Date: 20250717
  Serious: Yes (Hospitalization, Other)
  Sender: OTSUKA
  Company Number: JP-MMM-Otsuka-FGPKROU1

PATIENT
  Age: 77 Year
  Sex: Male

DRUGS (2)
  1. REXULTI [Suspect]
     Active Substance: BREXPIPRAZOLE
     Indication: Dementia Alzheimer^s type
     Route: 065
     Dates: start: 2025, end: 2025
  2. REXULTI [Suspect]
     Active Substance: BREXPIPRAZOLE
     Route: 065
     Dates: start: 202501, end: 2025

REACTIONS (1)
  - Pneumonia aspiration [Unknown]
